FAERS Safety Report 5332877-X (Version None)
Quarter: 2007Q2

REPORT INFORMATION
  Report Type: 
  Country: None (occurrence: None)
  Receive Date: 20070521
  Receipt Date: 20070502
  Transmission Date: 20071010
  Serious: Yes (Hospitalization)
  Sender: FDA-Public Use
  Company Number: DAV-AE-ACY-07-009

PATIENT
  Age: 26 Year
  Sex: Male

DRUGS (1)
  1. ACYCLOVIR [Suspect]
     Indication: ENCEPHALITIS HERPES
     Dosage: 30MG/KG/DAY IV
     Route: 042

REACTIONS (1)
  - CEREBRAL HAEMATOMA [None]
